FAERS Safety Report 17805507 (Version 1)
Quarter: 2020Q2

REPORT INFORMATION
  Report Type: Spontaneous
  Country: US (occurrence: US)
  Receive Date: 20200519
  Receipt Date: 20200519
  Transmission Date: 20200714
  Serious: Yes (Hospitalization)
  Sender: FDA-Public Use
  Company Number: US-AMNEAL PHARMACEUTICALS-2020-AMRX-01353

PATIENT
  Sex: Male
  Weight: 11.2 kg

DRUGS (2)
  1. VIGABATRIN. [Suspect]
     Active Substance: VIGABATRIN
     Indication: INFANTILE SPASMS
     Dosage: 1000 MILLIGRAM, 2 /DAY
     Route: 048
  2. SABRIL [Concomitant]
     Active Substance: VIGABATRIN
     Indication: PRODUCT USED FOR UNKNOWN INDICATION
     Dosage: UNK
     Route: 065

REACTIONS (1)
  - Adverse event [Unknown]
